FAERS Safety Report 7079455-2 (Version None)
Quarter: 2010Q4

REPORT INFORMATION
  Report Type: 
  Country: None (occurrence: None)
  Receive Date: 20101102
  Receipt Date: 20101029
  Transmission Date: 20110411
  Serious: Yes (Hospitalization)
  Sender: FDA-Public Use
  Company Number: ZA-BRISTOL-MYERS SQUIBB COMPANY-15360241

PATIENT
  Age: 70 Year
  Sex: Male

DRUGS (10)
  1. COAPROVEL [Suspect]
     Indication: HYPERTENSION
     Route: 048
     Dates: start: 20100201
  2. HUMALOG [Concomitant]
     Indication: DIABETES MELLITUS
     Dosage: 1 DF = 30 UNITS
     Route: 058
     Dates: start: 20050101
  3. LIPITOR [Concomitant]
     Indication: HYPERCHOLESTEROLAEMIA
     Route: 048
     Dates: start: 20050101
  4. GLUCOPHAGE [Concomitant]
     Indication: DIABETES MELLITUS
     Route: 048
     Dates: start: 20050101
  5. ALTOSEC [Concomitant]
     Indication: ANTACID THERAPY
     Route: 048
     Dates: start: 20050101
  6. AMLODIPINE [Concomitant]
     Indication: HYPERTENSION
     Route: 048
     Dates: start: 20050101
  7. DILTIAZEM HCL [Concomitant]
     Indication: HYPERTENSION
     Route: 048
     Dates: start: 20050101
  8. DISPRIN [Concomitant]
     Dosage: 1 DF = HALF TABS
     Route: 048
  9. DOTHIEPIN HYDROCHLORIDE [Concomitant]
     Indication: DEPRESSION
     Dosage: SANDOZ DOTHIEPIN
     Route: 048
     Dates: start: 20050101
  10. PHYSIOTENS [Concomitant]
     Indication: HYPERTENSION
     Route: 048
     Dates: start: 20050101

REACTIONS (1)
  - KIDNEY INFECTION [None]
